FAERS Safety Report 17224371 (Version 3)
Quarter: 2020Q1

REPORT INFORMATION
  Report Type: Report from Study
  Country: CN (occurrence: CN)
  Receive Date: 20200102
  Receipt Date: 20200304
  Transmission Date: 20200409
  Serious: Yes (Hospitalization)
  Sender: FDA-Public Use
  Company Number: NVSC2019CN081566

PATIENT
  Age: 56 Year
  Sex: Male

DRUGS (8)
  1. PEMBROLIZUMAB. [Suspect]
     Active Substance: PEMBROLIZUMAB
     Indication: NON-SMALL CELL LUNG CANCER
     Dosage: 200 MG, Q3W
     Route: 042
     Dates: start: 20171123
  2. PACLITAXEL. [Suspect]
     Active Substance: PACLITAXEL
     Indication: NON-SMALL CELL LUNG CANCER
     Dosage: 100 MG/M2, Q3W
     Route: 042
     Dates: start: 20171123
  3. COMPARATOR CARBOPLATIN [Suspect]
     Active Substance: CARBOPLATIN
     Indication: NON-SMALL CELL LUNG CANCER
     Dosage: 5 MG, Q3W
     Route: 042
     Dates: start: 20171123
  4. CANAKINUMAB. [Suspect]
     Active Substance: CANAKINUMAB
     Indication: NON-SMALL CELL LUNG CANCER METASTATIC
     Dosage: UNK
     Route: 058
     Dates: start: 20171123
  5. CELECOXIB. [Concomitant]
     Active Substance: CELECOXIB
     Indication: PLEURAL EFFUSION
     Dosage: UNK
     Route: 065
     Dates: start: 20191228
  6. COMPOUND LIQUORICE [Concomitant]
     Indication: PLEURAL EFFUSION
     Dosage: UNK
     Route: 065
     Dates: start: 20191231
  7. SPIRONOLACTONE. [Concomitant]
     Active Substance: SPIRONOLACTONE
     Indication: PLEURAL EFFUSION
     Dosage: UNK
     Route: 065
     Dates: start: 20191231
  8. FUROSEMIDE. [Concomitant]
     Active Substance: FUROSEMIDE
     Indication: PLEURAL EFFUSION
     Dosage: UNK
     Route: 065
     Dates: start: 20191231

REACTIONS (1)
  - Pyrexia [Not Recovered/Not Resolved]

NARRATIVE: CASE EVENT DATE: 20191226
